FAERS Safety Report 21085138 (Version 2)
Quarter: 2022Q3

REPORT INFORMATION
  Report Type: Spontaneous
  Country: US (occurrence: US)
  Receive Date: 20220714
  Receipt Date: 20220722
  Transmission Date: 20221027
  Serious: No
  Sender: FDA-Public Use
  Company Number: US-SANOFI-01184969

PATIENT
  Age: 77 Year
  Sex: Female

DRUGS (1)
  1. LANTUS [Suspect]
     Active Substance: INSULIN GLARGINE
     Indication: Diabetes mellitus
     Dosage: 65 IU, QD

REACTIONS (4)
  - Weight decreased [Unknown]
  - Blood glucose abnormal [Not Recovered/Not Resolved]
  - Product storage error [Unknown]
  - Injection site pain [Unknown]
